FAERS Safety Report 9922533 (Version 1)
Quarter: 2014Q1

REPORT INFORMATION
  Report Type: Spontaneous
  Country: US (occurrence: US)
  Receive Date: 20140225
  Receipt Date: 20140225
  Transmission Date: 20141002
  Serious: No
  Sender: FDA-Public Use
  Company Number: US-ABBVIE-13P-163-1056510-00

PATIENT
  Sex: Male

DRUGS (3)
  1. ANDROGEL [Suspect]
     Indication: BLOOD TESTOSTERONE DECREASED
  2. TESTOSTERONE [Concomitant]
     Indication: BLOOD TESTOSTERONE DECREASED
  3. TESTAPAL [Concomitant]
     Indication: BLOOD TESTOSTERONE DECREASED

REACTIONS (1)
  - Pruritus [Unknown]
